FAERS Safety Report 19753692 (Version 1)
Quarter: 2021Q3

REPORT INFORMATION
  Report Type: Spontaneous
  Country: CN (occurrence: CN)
  Receive Date: 20210826
  Receipt Date: 20210826
  Transmission Date: 20211014
  Serious: Yes (Other)
  Sender: FDA-Public Use
  Company Number: CN-MEDICUREINC-2021CNLIT00003

PATIENT

DRUGS (4)
  1. ASPIRIN. [Concomitant]
     Active Substance: ASPIRIN
     Indication: ANTIPLATELET THERAPY
     Dosage: 300 MG, ONCE/ D (PREOPERATIVE), 100 MG, ONCE/D (POSTOPERATIVE)
     Route: 048
  2. CLOPIDOGREL BISULFATE. [Concomitant]
     Active Substance: CLOPIDOGREL BISULFATE
     Indication: ANTIPLATELET THERAPY
     Dosage: 300 MG FOR THE FIRST TIME, ONCE/D, AND THEN 75MG, ONCE/D
     Route: 048
  3. AGGRASTAT [Suspect]
     Active Substance: TIROFIBAN HYDROCHLORIDE
     Indication: ACUTE CORONARY SYNDROME
     Dosage: PREOPERATIVE LOADING INJECTION 10G/KG/MIN, AND THEN MAINTAINING AT 0.15G/KG/MIN24H
  4. HEPARIN CALCIUM [Concomitant]
     Active Substance: HEPARIN CALCIUM
     Indication: ANTIPLATELET THERAPY
     Dosage: OW MOLECULAR WEIGHT HEPARIN CALCIUM: 1ML:  5000AXA, ONCE/D

REACTIONS (1)
  - Myocardial infarction [Unknown]
